FAERS Safety Report 18555374 (Version 2)
Quarter: 2020Q4

REPORT INFORMATION
  Report Type: Spontaneous
  Country: US (occurrence: US)
  Receive Date: 20201127
  Receipt Date: 20201127
  Transmission Date: 20210114
  Serious: No
  Sender: FDA-Public Use
  Company Number: US-NOVOPROD-711522

PATIENT
  Age: 74 Year
  Sex: Female
  Weight: 66.68 kg

DRUGS (2)
  1. NOVOLIN N [Suspect]
     Active Substance: INSULIN HUMAN
     Indication: DIABETES MELLITUS
     Dosage: 16 UNITS IN THE MORNING
     Route: 058
     Dates: start: 20191226
  2. NOVOLIN R [Suspect]
     Active Substance: INSULIN HUMAN
     Indication: DIABETES MELLITUS
     Dosage: 6 UNIT + SLIDING SCALE /1 UNIT DAILY AND 4 UNITS AT LUNCH TIME
     Route: 058

REACTIONS (3)
  - Blood glucose fluctuation [Recovering/Resolving]
  - Vision blurred [Recovering/Resolving]
  - Anxiety [Unknown]

NARRATIVE: CASE EVENT DATE: 20191226
